FAERS Safety Report 10468686 (Version 1)
Quarter: 2014Q3

REPORT INFORMATION
  Report Type: Report from Study
  Country: US (occurrence: US)
  Receive Date: 20140922
  Receipt Date: 20140922
  Transmission Date: 20150326
  Serious: Yes (Other)
  Sender: FDA-Public Use
  Company Number: US-ALEXION-A200800787

PATIENT
  Sex: Female

DRUGS (1)
  1. SOLIRIS [Suspect]
     Active Substance: ECULIZUMAB
     Indication: PAROXYSMAL NOCTURNAL HAEMOGLOBINURIA
     Dosage: UNK
     Route: 042

REACTIONS (12)
  - Hypersensitivity [Recovered/Resolved]
  - Haemoglobin decreased [Unknown]
  - Pruritus [Recovered/Resolved]
  - Rash papular [Recovered/Resolved]
  - Sensation of foreign body [Unknown]
  - Chest discomfort [Unknown]
  - Quality of life decreased [Unknown]
  - Head discomfort [Unknown]
  - Chest pain [Unknown]
  - Rash [Recovered/Resolved]
  - Dyspnoea [Unknown]
  - Fatigue [Unknown]
